FAERS Safety Report 5664043-2 (Version None)
Quarter: 2008Q1

REPORT INFORMATION
  Report Type: 
  Country: None (occurrence: None)
  Receive Date: 20080314
  Receipt Date: 20080311
  Transmission Date: 20080703
  Serious: Yes (Death, Life-Threatening, Hospitalization, Other)
  Sender: FDA-Public Use
  Company Number: US-BRISTOL-MYERS SQUIBB COMPANY-13922398

PATIENT
  Age: 65 Year
  Sex: Male

DRUGS (8)
  1. CETUXIMAB [Suspect]
     Indication: PANCREATIC CARCINOMA METASTATIC
     Route: 042
     Dates: start: 20070919, end: 20070919
  2. IXABEPILONE [Suspect]
     Indication: PANCREATIC CARCINOMA METASTATIC
     Route: 042
     Dates: start: 20070919, end: 20070919
  3. REGLAN [Concomitant]
     Dates: start: 20070919
  4. MEGACE [Concomitant]
     Dates: start: 20070924
  5. SENOKOT [Concomitant]
     Dates: start: 20070922
  6. MORPHINE [Concomitant]
     Dates: start: 20070925, end: 20070930
  7. PROCHLORPERAZINE [Concomitant]
     Dates: start: 20070925, end: 20070930
  8. CEFTAZIDIME SODIUM [Concomitant]

REACTIONS (6)
  - FEBRILE NEUTROPENIA [None]
  - HYPOTENSION [None]
  - HYPOXIA [None]
  - INTERNATIONAL NORMALISED RATIO INCREASED [None]
  - MALIGNANT NEOPLASM PROGRESSION [None]
  - RESPIRATORY FAILURE [None]
